FAERS Safety Report 7207539-4 (Version None)
Quarter: 2011Q1

REPORT INFORMATION
  Report Type: 
  Country: None (occurrence: None)
  Receive Date: 20110103
  Receipt Date: 20101116
  Transmission Date: 20110831
  Serious: No
  Sender: FDA-Public Use
  Company Number: US-JNJFOC-20101202626

PATIENT

DRUGS (7)
  1. INVEGA [Suspect]
     Indication: DRUG THERAPY
     Route: 048
  2. GEODON [Concomitant]
     Indication: DRUG THERAPY
  3. CYMBALTA [Concomitant]
     Indication: DRUG THERAPY
  4. ARICEPT [Concomitant]
     Indication: DRUG THERAPY
  5. TOPAMAX [Concomitant]
     Indication: DRUG THERAPY
  6. LAMICTAL [Concomitant]
     Indication: DRUG THERAPY
  7. AN UNKNOWN MEDICATION [Concomitant]
     Indication: DRUG THERAPY

REACTIONS (1)
  - HYPERSENSITIVITY [None]
